FAERS Safety Report 25721457 (Version 1)
Quarter: 2025Q3

REPORT INFORMATION
  Report Type: Other
  Country: EU (occurrence: EU)
  Receive Date: 20250825
  Receipt Date: 20250825
  Transmission Date: 20251021
  Serious: Yes (Life-Threatening, Other)
  Sender: ZYDUS PHARM
  Company Number: None

PATIENT

DRUGS (8)
  1. CLOPIDOGREL [Interacting]
     Active Substance: CLOPIDOGREL BISULFATE
     Indication: Cardiovascular event prophylaxis
     Route: 048
     Dates: end: 20250726
  2. CEFAZOLIN [Interacting]
     Active Substance: CEFAZOLIN
     Indication: Infection
     Route: 042
     Dates: start: 20250713, end: 20250730
  3. INNOHEP [Interacting]
     Active Substance: TINZAPARIN SODIUM
     Indication: Cardiovascular event prophylaxis
     Route: 058
     Dates: start: 20250712, end: 20250726
  4. RIFAMPIN [Suspect]
     Active Substance: RIFAMPIN
     Indication: Infection
     Route: 048
     Dates: start: 20250716, end: 20250722
  5. RIFAMPIN [Suspect]
     Active Substance: RIFAMPIN
     Route: 048
     Dates: start: 20250723
  6. LANSOPRAZOLE [Concomitant]
     Active Substance: LANSOPRAZOLE
     Indication: Product used for unknown indication
     Route: 048
  7. BISOPROLOL [Concomitant]
     Active Substance: BISOPROLOL
     Indication: Product used for unknown indication
     Route: 048
  8. ATORVASTATIN [Concomitant]
     Active Substance: ATORVASTATIN
     Indication: Product used for unknown indication
     Route: 048

REACTIONS (3)
  - Coagulation factor deficiency [Recovered/Resolved]
  - Gastrointestinal haemorrhage [Recovered/Resolved]
  - Drug interaction [Recovered/Resolved]

NARRATIVE: CASE EVENT DATE: 20250726
